FAERS Safety Report 8513826-X (Version None)
Quarter: 2012Q3

REPORT INFORMATION
  Report Type: 
  Country: None (occurrence: None)
  Receive Date: 20120705
  Receipt Date: 20120627
  Transmission Date: 20120928
  Serious: Yes (Other)
  Sender: FDA-Public Use
  Company Number: WAES 1206USA05413

PATIENT
  Age: 78 Year
  Sex: Male
  Weight: 94.8018 kg

DRUGS (4)
  1. ZOCOR [Suspect]
     Indication: ACUTE CORONARY SYNDROME
     Dosage: 40 MG/DAILY/PO
     Route: 048
     Dates: start: 20060807
  2. PLACEBO [Suspect]
     Indication: ACUTE CORONARY SYNDROME
     Dosage: DAILY/PO ; DAILY/PO
     Route: 048
     Dates: start: 20060807
  3. PLACEBO [Suspect]
     Indication: ACUTE CORONARY SYNDROME
     Dosage: DAILY/PO ; DAILY/PO
     Route: 048
     Dates: start: 20060807
  4. ASPIRIN [Concomitant]

REACTIONS (2)
  - SQUAMOUS CELL CARCINOMA [None]
  - BASAL CELL CARCINOMA [None]
